FAERS Safety Report 4825377-4 (Version None)
Quarter: 2005Q4

REPORT INFORMATION
  Report Type: 
  Country: None (occurrence: None)
  Receive Date: 20051111
  Receipt Date: 20050803
  Transmission Date: 20060501
  Serious: Yes (Hospitalization, Disabling)
  Sender: FDA-Public Use
  Company Number: US-MERCK-0508USA01129

PATIENT
  Age: 58 Year
  Sex: Male
  Weight: 142 kg

DRUGS (13)
  1. VIOXX [Suspect]
     Indication: ARTHRALGIA
     Route: 048
     Dates: start: 20000101, end: 20010201
  2. VIOXX [Suspect]
     Route: 048
     Dates: start: 20000101, end: 20010201
  3. VIOXX [Suspect]
     Indication: PAIN IN EXTREMITY
     Route: 048
     Dates: start: 20000101, end: 20010201
  4. VIOXX [Suspect]
     Route: 048
     Dates: start: 20000101, end: 20010201
  5. ADVIL [Concomitant]
     Route: 065
  6. MOTRIN [Concomitant]
     Route: 065
  7. TYLENOL (CAPLET) [Concomitant]
     Route: 065
  8. EXCEDRIN (MIGRAINE) [Concomitant]
     Route: 065
  9. PEPCID [Concomitant]
     Route: 065
  10. HYDROCODONE BITARTRATE [Concomitant]
     Route: 065
  11. KETOROLAC TROMETHAMINE [Concomitant]
     Route: 065
  12. PROMETHAZINE [Concomitant]
     Route: 065
  13. LEVAQUIN [Concomitant]
     Route: 065

REACTIONS (8)
  - CARDIAC DISORDER [None]
  - CATARACT [None]
  - CORONARY ARTERY DISEASE [None]
  - INTESTINAL FUNCTIONAL DISORDER [None]
  - MYOCARDIAL INFARCTION [None]
  - NEPHROLITHIASIS [None]
  - SLEEP APNOEA SYNDROME [None]
  - THROMBOSIS [None]
